FAERS Safety Report 4300643-X (Version None)
Quarter: 2004Q1

REPORT INFORMATION
  Report Type: 
  Country: None (occurrence: None)
  Receive Date: 20040217
  Receipt Date: 20040206
  Transmission Date: 20041129
  Serious: Yes (Hospitalization)
  Sender: FDA-Public Use
  Company Number: 2004007753

PATIENT
  Age: 76 Year
  Sex: Male

DRUGS (4)
  1. QUINAPRIL HCL [Suspect]
     Indication: ILL-DEFINED DISORDER
     Dosage: 20 MG ORAL
     Route: 048
     Dates: end: 19990309
  2. ISOSORBIDE MONONITRATE [Concomitant]
  3. AMIODARONE HYRDOCHLORIDE (AMIODARONE HYDROCHLORIDE) [Concomitant]
  4. ACETYLSALICYLIC ACID SRT [Concomitant]

REACTIONS (4)
  - CONFUSIONAL STATE [None]
  - GAIT DISTURBANCE [None]
  - HYPONATRAEMIA [None]
  - ORTHOSTATIC HYPOTENSION [None]
